FAERS Safety Report 8363243-0 (Version None)
Quarter: 2012Q2

REPORT INFORMATION
  Report Type: 
  Country: None (occurrence: None)
  Receive Date: 20120516
  Receipt Date: 20111205
  Transmission Date: 20120825
  Serious: No
  Sender: FDA-Public Use
  Company Number: US-ALEXION-A201101601

PATIENT

DRUGS (2)
  1. SOLIRIS [Suspect]
     Indication: PAROXYSMAL NOCTURNAL HAEMOGLOBINURIA
     Dosage: 600 MG, QW
     Route: 042
     Dates: start: 20111018
  2. PENICILLIN VK [Concomitant]
     Indication: PROPHYLAXIS
     Dosage: 500 MG, BID
     Dates: start: 20111005

REACTIONS (3)
  - CHROMATURIA [None]
  - HEADACHE [None]
  - FATIGUE [None]
